FAERS Safety Report 18975193 (Version 1)
Quarter: 2021Q1

REPORT INFORMATION
  Report Type: Spontaneous
  Country: ES (occurrence: ES)
  Receive Date: 20210305
  Receipt Date: 20210305
  Transmission Date: 20210420
  Serious: Yes (Life-Threatening)
  Sender: FDA-Public Use
  Company Number: NVSC2021ES049302

PATIENT
  Age: 29 Year
  Sex: Female

DRUGS (1)
  1. HYRIMOZ [Suspect]
     Active Substance: ADALIMUMAB-ADAZ
     Indication: SPONDYLITIS
     Dosage: 40 MG
     Route: 058
     Dates: start: 20200902

REACTIONS (3)
  - Retinitis [Recovering/Resolving]
  - Neutropenia [Recovering/Resolving]
  - Toxoplasmosis [Recovering/Resolving]

NARRATIVE: CASE EVENT DATE: 20210212
